FAERS Safety Report 15807542 (Version 1)
Quarter: 2018Q4

REPORT INFORMATION
  Report Type: Spontaneous
  Country: US (occurrence: US)
  Receive Date: 20181214
  Receipt Date: 20181214
  Transmission Date: 20190205
  Serious: No
  Sender: FDA-Public Use
  Company Number: None

PATIENT
  Age: 53 Year
  Sex: Male
  Weight: 86.18 kg

DRUGS (1)
  1. SIMPONI ARIA [Suspect]
     Active Substance: GOLIMUMAB
     Indication: RHEUMATOID ARTHRITIS
     Dosage: INFUSE 173MG INTRAVENOUSLY OVER 30 MINUTES AT WEEKS 0 AND 4 AS DIRECTED
     Route: 042
     Dates: start: 201811

REACTIONS (2)
  - Muscular weakness [None]
  - Fatigue [None]
